FAERS Safety Report 9646666 (Version 2)
Quarter: 2013Q4

REPORT INFORMATION
  Report Type: Spontaneous
  Country: US (occurrence: US)
  Receive Date: 20131026
  Receipt Date: 20131026
  Transmission Date: 20140711
  Serious: Yes (Hospitalization)
  Sender: FDA-Public Use
  Company Number: US-US-EMD SERONO, INC.-237634K06USA

PATIENT
  Age: 35 Year
  Sex: Female

DRUGS (3)
  1. REBIF [Suspect]
     Indication: MULTIPLE SCLEROSIS
     Route: 058
     Dates: start: 20050715
  2. EX-LAX [Concomitant]
     Indication: CONSTIPATION
  3. STEROIDS [Concomitant]
     Indication: MULTIPLE SCLEROSIS RELAPSE
     Dates: start: 20060810, end: 20060815

REACTIONS (1)
  - Hepatic enzyme increased [Recovering/Resolving]
